FAERS Safety Report 23709571 (Version 4)
Quarter: 2025Q2

REPORT INFORMATION
  Report Type: Report from Study
  Country: JP (occurrence: JP)
  Receive Date: 20240404
  Receipt Date: 20250414
  Transmission Date: 20250716
  Serious: Yes (Death, Other)
  Sender: NOVARTIS
  Company Number: JP-002147023-NVSC2023JP011020

PATIENT
  Age: 73 Year
  Sex: Male
  Weight: 58.2 kg

DRUGS (9)
  1. LUTATHERA [Suspect]
     Active Substance: LUTETIUM OXODOTREOTIDE LU-177
     Indication: Neuroendocrine tumour
     Route: 042
     Dates: start: 20220414
  2. LUTATHERA [Suspect]
     Active Substance: LUTETIUM OXODOTREOTIDE LU-177
     Route: 042
     Dates: start: 20220609
  3. LUTATHERA [Suspect]
     Active Substance: LUTETIUM OXODOTREOTIDE LU-177
     Route: 042
     Dates: start: 20220804
  4. ARGININE\LYSINE [Suspect]
     Active Substance: ARGININE\LYSINE
     Indication: Product used for unknown indication
     Route: 065
     Dates: start: 20220414
  5. ARGININE\LYSINE [Suspect]
     Active Substance: ARGININE\LYSINE
     Route: 065
     Dates: start: 20220609
  6. ARGININE\LYSINE [Suspect]
     Active Substance: ARGININE\LYSINE
     Route: 065
     Dates: start: 20220804
  7. PALONOSETRON [Concomitant]
     Active Substance: PALONOSETRON
     Indication: Prophylaxis of nausea and vomiting
     Route: 042
  8. PALONOSETRON [Concomitant]
     Active Substance: PALONOSETRON
     Route: 065
  9. PALONOSETRON [Concomitant]
     Active Substance: PALONOSETRON
     Route: 065

REACTIONS (10)
  - Disseminated intravascular coagulation [Fatal]
  - Gastroenteropancreatic neuroendocrine tumour disease [Fatal]
  - Malignant neoplasm progression [Fatal]
  - Lymphocyte percentage decreased [Fatal]
  - Red blood cell count decreased [Fatal]
  - Blood urea increased [Fatal]
  - Blood pressure systolic increased [Fatal]
  - Monocyte percentage increased [Fatal]
  - Tumour lysis syndrome [Unknown]
  - Decreased appetite [Recovering/Resolving]

NARRATIVE: CASE EVENT DATE: 20220619
